FAERS Safety Report 15906100 (Version 1)
Quarter: 2019Q1

REPORT INFORMATION
  Report Type: Spontaneous
  Country: US (occurrence: US)
  Receive Date: 20190203
  Receipt Date: 20190203
  Transmission Date: 20190417
  Serious: No
  Sender: FDA-Public Use
  Company Number: None

PATIENT
  Age: 37 Year
  Sex: Female
  Weight: 89.1 kg

DRUGS (4)
  1. CLONSAPAM 1MG 4X A DAY ACC [Suspect]
     Active Substance: CLONAZEPAM
     Indication: ANXIETY
     Dosage: ?          QUANTITY:120 TABLET(S);?
     Route: 048
  2. CLONSAPAM 1MG 4X A DAY ACC [Suspect]
     Active Substance: CLONAZEPAM
     Indication: PANIC ATTACK
     Dosage: ?          QUANTITY:120 TABLET(S);?
     Route: 048
  3. BUPROPION. [Concomitant]
     Active Substance: BUPROPION
  4. ADVIL [Concomitant]
     Active Substance: IBUPROFEN

REACTIONS (4)
  - Headache [None]
  - Product substitution issue [None]
  - Drug effect decreased [None]
  - Muscle spasms [None]

NARRATIVE: CASE EVENT DATE: 20190125
